FAERS Safety Report 4315138-7 (Version None)
Quarter: 2004Q1

REPORT INFORMATION
  Report Type: 
  Country: None (occurrence: None)
  Receive Date: 20040310
  Receipt Date: 20040301
  Transmission Date: 20041129
  Serious: Yes (Other)
  Sender: FDA-Public Use
  Company Number: US-GLAXOSMITHKLINE-A0501838A

PATIENT
  Sex: Female

DRUGS (3)
  1. PAXIL [Suspect]
     Indication: DEPRESSION
     Route: 048
  2. ZOLOFT [Suspect]
     Indication: DEPRESSION
  3. PROZAC [Suspect]
     Indication: DEPRESSION

REACTIONS (2)
  - SELF MUTILATION [None]
  - SUICIDAL IDEATION [None]
